FAERS Safety Report 20210334 (Version 1)
Quarter: 2021Q4

REPORT INFORMATION
  Report Type: Spontaneous
  Country: US (occurrence: US)
  Receive Date: 20211221
  Receipt Date: 20211221
  Transmission Date: 20220303
  Serious: No
  Sender: FDA-Public Use
  Company Number: US-GSKCCFUS-Case-01244835_AE-72912

PATIENT
  Age: 72 Year
  Sex: Female

DRUGS (1)
  1. BREO ELLIPTA [Suspect]
     Active Substance: FLUTICASONE FUROATE\VILANTEROL TRIFENATATE
     Indication: Product used for unknown indication
     Dosage: 1 PUFF(S), QD, 200/25MCG
     Route: 055
     Dates: start: 20211214

REACTIONS (5)
  - Dizziness [Recovered/Resolved]
  - Energy increased [Unknown]
  - Hyperaesthesia teeth [Recovered/Resolved]
  - Toothache [Recovered/Resolved]
  - Product storage error [Unknown]

NARRATIVE: CASE EVENT DATE: 20211214
